FAERS Safety Report 14661790 (Version 1)
Quarter: 2018Q1

REPORT INFORMATION
  Report Type: Spontaneous
  Country: US (occurrence: US)
  Receive Date: 20180318
  Receipt Date: 20180318
  Transmission Date: 20180509
  Serious: Yes (Hospitalization)
  Sender: FDA-Public Use
  Company Number: None

PATIENT
  Age: 16 Year
  Sex: Male
  Weight: 92.7 kg

DRUGS (10)
  1. CYCLOPHOSPHAMIDE. [Suspect]
     Active Substance: CYCLOPHOSPHAMIDE
     Dates: end: 20180109
  2. DOXORUBICIN HYDROCHLORIDE. [Concomitant]
     Active Substance: DOXORUBICIN HYDROCHLORIDE
     Dates: end: 20171226
  3. CYTARABINE. [Concomitant]
     Active Substance: CYTARABINE
     Dates: end: 20180109
  4. ONCASPAR [Concomitant]
     Active Substance: PEGASPARGASE
     Dates: end: 20180124
  5. VINCRISTINE SULFATE. [Concomitant]
     Active Substance: VINCRISTINE SULFATE
     Dates: end: 20180124
  6. CYTARABINE. [Concomitant]
     Active Substance: CYTARABINE
     Dates: end: 20180109
  7. THIOGUANINE (6-TG) [Concomitant]
     Active Substance: THIOGUANINE ANHYDROUS
     Dates: end: 20180122
  8. VORICONAZOLE VFEND [Concomitant]
  9. METHOTREXATE. [Concomitant]
     Active Substance: METHOTREXATE
     Dates: end: 20180117
  10. FUROSEMIDE LASIX [Concomitant]

REACTIONS (5)
  - Ventricular tachycardia [None]
  - Sepsis [None]
  - Pulseless electrical activity [None]
  - Cardio-respiratory arrest [None]
  - Apnoea [None]

NARRATIVE: CASE EVENT DATE: 20180209
